FAERS Safety Report 14909311 (Version 1)
Quarter: 2018Q2

REPORT INFORMATION
  Report Type: Spontaneous
  Country: AU (occurrence: AU)
  Receive Date: 20180517
  Receipt Date: 20180517
  Transmission Date: 20180711
  Serious: Yes (Other)
  Sender: FDA-Public Use
  Company Number: AU-PFIZER INC-2017316337

PATIENT
  Age: 65 Year
  Sex: Male
  Weight: 89 kg

DRUGS (7)
  1. ATORVASTATIN CALCIUM. [Suspect]
     Active Substance: ATORVASTATIN CALCIUM
     Dosage: 10 MG, NOCTE (AT NIGHT)
  2. ARIPIPRAZOLE. [Suspect]
     Active Substance: ARIPIPRAZOLE
     Dosage: 30 MG, MANE (IN THE MORNING)
  3. TEMAZEPAM. [Suspect]
     Active Substance: TEMAZEPAM
     Dosage: 10 MG, NOCTE (AT NIGHT)
  4. MIRTAZAPINE. [Suspect]
     Active Substance: MIRTAZAPINE
     Dosage: 30 MG, NOCTE (AT NIGHT)
  5. OXAZEPAM. [Suspect]
     Active Substance: OXAZEPAM
     Dosage: 7.5 MG, PRN (AS NEEDED)
  6. CHOLECALCIFEROL [Suspect]
     Active Substance: CHOLECALCIFEROL
     Dosage: 25MCG MANE (IN THE MORNING)
  7. ASPIRIN /00002701/ [Suspect]
     Active Substance: ASPIRIN
     Dosage: 100 MG, MANE (IN THE MORNING)

REACTIONS (2)
  - Ejection fraction decreased [Unknown]
  - Cardiomyopathy [Unknown]
